FAERS Safety Report 12181024 (Version 2)
Quarter: 2016Q2

REPORT INFORMATION
  Report Type: Spontaneous
  Country: US (occurrence: US)
  Receive Date: 20160315
  Receipt Date: 20160505
  Transmission Date: 20160815
  Serious: Yes (Other)
  Sender: FDA-Public Use
  Company Number: US-ALLERGAN-1645883US

PATIENT
  Age: 79 Year
  Sex: Female

DRUGS (1)
  1. RESTASIS [Suspect]
     Active Substance: CYCLOSPORINE
     Indication: PRODUCT USED FOR UNKNOWN INDICATION
     Dosage: 2 GTT, BID
     Route: 047

REACTIONS (5)
  - Fall [Unknown]
  - Arrhythmia [Unknown]
  - Heart rate increased [Recovered/Resolved]
  - Knee operation [Unknown]
  - Hip surgery [Unknown]

NARRATIVE: CASE EVENT DATE: 2015
